FAERS Safety Report 19846167 (Version 1)
Quarter: 2021Q3

REPORT INFORMATION
  Report Type: Spontaneous
  Country: CA (occurrence: CA)
  Receive Date: 20210917
  Receipt Date: 20210917
  Transmission Date: 20211014
  Serious: Yes (Life-Threatening, Hospitalization, Other)
  Sender: FDA-Public Use
  Company Number: CA-LUPIN PHARMACEUTICALS INC.-2021-17578

PATIENT
  Age: 68 Year
  Sex: Female

DRUGS (7)
  1. LEVODOPA?CARBIDOPA [Suspect]
     Active Substance: CARBIDOPA\LEVODOPA
     Dosage: UNK DOSE REDUCED TO HALF
     Route: 065
  2. ALBUTEROL SULFATE. [Suspect]
     Active Substance: ALBUTEROL SULFATE
     Indication: ASTHMA
     Dosage: UNK, INHALER
  3. PREDNISONE. [Concomitant]
     Active Substance: PREDNISONE
     Indication: ASTHMA
     Dosage: UNK (SHORT COURSE)
     Route: 065
  4. SYMBICORT [Suspect]
     Active Substance: BUDESONIDE\FORMOTEROL FUMARATE DIHYDRATE
     Indication: ASTHMA
     Dosage: UNK
  5. AMANTADINE. [Suspect]
     Active Substance: AMANTADINE HYDROCHLORIDE
     Indication: PARKINSON^S DISEASE
     Dosage: 100 MILLIGRAM, BID
     Route: 065
  6. PRAMIPEXOLE. [Suspect]
     Active Substance: PRAMIPEXOLE
     Indication: PARKINSON^S DISEASE
     Dosage: 0.25 MILLIGRAM, QD
     Route: 065
  7. LEVODOPA?CARBIDOPA [Suspect]
     Active Substance: CARBIDOPA\LEVODOPA
     Indication: PARKINSON^S DISEASE
     Dosage: UNK 100/25 MG FOUR TIMES A DAY (QID)
     Route: 065

REACTIONS (5)
  - Dystonia [Recovering/Resolving]
  - Dyskinesia [Recovering/Resolving]
  - Stridor [Recovered/Resolved]
  - Respiratory distress [Recovering/Resolving]
  - Drug ineffective [Unknown]
